FAERS Safety Report 5728082-5 (Version None)
Quarter: 2008Q2

REPORT INFORMATION
  Report Type: 
  Country: None (occurrence: None)
  Receive Date: 20080430
  Receipt Date: 20080416
  Transmission Date: 20081010
  Serious: Yes (Hospitalization)
  Sender: FDA-Public Use
  Company Number: 233636J08USA

PATIENT
  Age: 66 Year
  Sex: Female
  Weight: 83.4619 kg

DRUGS (5)
  1. REBIF [Suspect]
     Indication: MULTIPLE SCLEROSIS
     Dosage: 44 MCG, 3 IN 1 WEEKS, SUBCUTANEOUS
     Route: 058
     Dates: start: 20070831, end: 20080101
  2. 4-AMINOPYRIDINE (F-AMPRIDINE) [Concomitant]
  3. LEXAPRO [Concomitant]
  4. ATENOLOL [Concomitant]
  5. HYDROCODONE (HYDROCODONE) [Concomitant]

REACTIONS (5)
  - CONDITION AGGRAVATED [None]
  - DEPRESSION [None]
  - INFLUENZA LIKE ILLNESS [None]
  - MULTIPLE SCLEROSIS [None]
  - URINARY TRACT INFECTION STAPHYLOCOCCAL [None]
